APPROVED DRUG PRODUCT: TEMBEXA
Active Ingredient: BRINCIDOFOVIR
Strength: 100MG
Dosage Form/Route: TABLET;ORAL
Application: N214461 | Product #001
Applicant: EMERGENT BIODEFENSE OPERATIONS LANSING INC
Approved: Jun 4, 2021 | RLD: Yes | RS: Yes | Type: RX

PATENTS:
Patent 10112909 | Expires: Oct 10, 2034
Patent 9303051 | Expires: Aug 31, 2031
Patent 10487061 | Expires: Oct 10, 2034
Patent 8962829 | Expires: Oct 10, 2034
Patent 9371344 | Expires: Oct 10, 2034

EXCLUSIVITY:
Code: ODE-354 | Date: Jun 4, 2028